FAERS Safety Report 22386887 (Version 1)
Quarter: 2023Q2

REPORT INFORMATION
  Report Type: Spontaneous
  Country: DK (occurrence: None)
  Receive Date: 20230531
  Receipt Date: 20230531
  Transmission Date: 20230721
  Serious: Yes (Hospitalization, Other)
  Sender: FDA-Public Use
  Company Number: DK-MLMSERVICE-20230519-4289877-1

PATIENT
  Age: 7 Decade
  Sex: Male

DRUGS (4)
  1. METHOTREXATE [Suspect]
     Active Substance: METHOTREXATE
     Indication: Immunosuppressant drug therapy
     Dates: start: 2017
  2. METHOTREXATE [Suspect]
     Active Substance: METHOTREXATE
     Indication: Sarcoidosis
  3. CORTICOSTEROID NOS [Suspect]
     Active Substance: CORTICOSTEROID NOS
     Indication: Sarcoidosis
     Dosage: VARYING DOSES
  4. CORTICOSTEROID NOS [Suspect]
     Active Substance: CORTICOSTEROID NOS
     Dosage: GRADUALLY REDUCED

REACTIONS (7)
  - Atypical mycobacterial infection [Recovered/Resolved]
  - Pneumonia [Recovered/Resolved]
  - Device related infection [Recovered/Resolved]
  - Spinal cord infection [Recovered/Resolved]
  - Infectious pleural effusion [Recovered/Resolved]
  - Immunodeficiency [Unknown]
  - Product use in unapproved indication [Unknown]
